FAERS Safety Report 8499881-4 (Version None)
Quarter: 2012Q3

REPORT INFORMATION
  Report Type: 
  Country: None (occurrence: None)
  Receive Date: 20120703
  Receipt Date: 20120703
  Transmission Date: 20120928
  Serious: Yes (Hospitalization)
  Sender: FDA-Public Use
  Company Number: None

PATIENT
  Sex: Male
  Weight: 22 kg

DRUGS (1)
  1. PROGRAF [Suspect]
     Indication: BONE MARROW TRANSPLANT
     Dosage: 0.5MG AND 1.0MG BID PO
     Route: 048
     Dates: start: 20120401

REACTIONS (1)
  - ADRENOCORTICAL INSUFFICIENCY ACUTE [None]
